FAERS Safety Report 9108679 (Version 2)
Quarter: 2013Q1

REPORT INFORMATION
  Report Type: Spontaneous
  Country: US (occurrence: US)
  Receive Date: 20130222
  Receipt Date: 20130313
  Transmission Date: 20140127
  Serious: Yes (Hospitalization, Other)
  Sender: FDA-Public Use
  Company Number: US-BAYER-2013-021089

PATIENT
  Age: 32 Year
  Sex: Female
  Weight: 100.23 kg

DRUGS (30)
  1. BEYAZ [Suspect]
  2. YAZ [Suspect]
     Dosage: UNK
     Dates: start: 201102
  3. YASMIN [Suspect]
     Dosage: UNK
     Dates: start: 201102
  4. ACTOS [Concomitant]
     Indication: BLOOD GLUCOSE ABNORMAL
     Dosage: 30 MG, 1 IN THE  MORNING
     Route: 048
  5. GLIPIZIDE [Concomitant]
     Dosage: 5 MG, UNK
     Route: 048
  6. METOPROLOL RETARD [Concomitant]
     Indication: BLOOD PRESSURE ABNORMAL
     Dosage: 50 MG, UNK
     Route: 048
  7. MOTRIN [Concomitant]
  8. TRAMADOL [Concomitant]
     Indication: PAIN
     Dosage: 50 MG, ONE TABLET EVERY 4-6 HOURS AS NEEDED
     Route: 048
  9. IBUPROFEN [Concomitant]
     Indication: PAIN
     Dosage: 800 MG, UNK
     Route: 048
  10. KLOR-CON [Concomitant]
     Dosage: 10 MEQ, UNK
     Route: 048
  11. ACTOS [Concomitant]
     Dosage: 30 MG, DAILY
     Route: 048
  12. GLYBURIDE [Concomitant]
     Dosage: 5 MG, UNK
     Route: 048
  13. VERSED [Concomitant]
     Dosage: 2 MG/2 ML
  14. SUBLIMAZE [Concomitant]
     Dosage: 50 MCG/ML, UNK
  15. MORPHINE SULFATE [Concomitant]
     Dosage: 4 MG/ML, UNK
  16. DIPRIVAN [Concomitant]
     Dosage: 20 ML, UNK
  17. PITRESSIN [Concomitant]
     Dosage: 20 UNIT
  18. ANCEF [Concomitant]
     Dosage: 1 G, UNK
  19. NOVOLIN R [Concomitant]
  20. GLIMEPIRIDE [Concomitant]
     Dosage: 4 MG, UNK
  21. BENTYL [Concomitant]
     Dosage: 10 MG, UNK
  22. GLIPIZIDE ER [Concomitant]
     Indication: BLOOD GLUCOSE ABNORMAL
     Route: 048
  23. TYLENOL #3 [Concomitant]
  24. HYDROCODONE/ACETAMINOPHEN [Concomitant]
     Indication: PAIN
     Dosage: 10-325MG TAKE ONE TABLET EVERY 4-6 HOURS AS NEEDED
     Route: 048
  25. HYDROCODONE/ACETAMINOPHEN [Concomitant]
     Indication: PAIN
     Dosage: 5-500MG TAKE ONE  TABLET EVERY 8 HOURS AS NEEDED
     Route: 048
  26. VICODIN [Concomitant]
  27. POTASSIUM [Concomitant]
  28. ULTRAM [Concomitant]
  29. NOVOLOG [Concomitant]
  30. LANTUS [Concomitant]

REACTIONS (6)
  - Cholecystitis chronic [None]
  - Deep vein thrombosis [None]
  - Injury [None]
  - Pain [None]
  - Pain [None]
  - Fear of disease [None]
